FAERS Safety Report 6043425-3 (Version None)
Quarter: 2009Q1

REPORT INFORMATION
  Report Type: 
  Country: None (occurrence: None)
  Receive Date: 20090115
  Receipt Date: 20090115
  Transmission Date: 20090719
  Serious: No
  Sender: FDA-Public Use
  Company Number: None

PATIENT
  Age: 70 Year
  Sex: Female
  Weight: 60 kg

DRUGS (5)
  1. ERYTHROMYCIN [Suspect]
     Indication: INJECTION
     Dosage: 333 MG Q8H PO X 2 DOSES
     Route: 048
     Dates: start: 20080125
  2. SYNTHROID [Concomitant]
  3. SAFRIVO [Concomitant]
  4. NAMENDA [Concomitant]
  5. PAXIL [Concomitant]

REACTIONS (1)
  - RASH [None]
